FAERS Safety Report 4820099-8 (Version None)
Quarter: 2005Q4

REPORT INFORMATION
  Report Type: 
  Country: None (occurrence: None)
  Receive Date: 20051103
  Receipt Date: 20030226
  Transmission Date: 20060501
  Serious: Yes (Disabling, Other)
  Sender: FDA-Public Use
  Company Number: JP-ABBOTT-03P-087-0212206-00

PATIENT
  Sex: Male

DRUGS (18)
  1. KALETRA [Suspect]
     Indication: HIV INFECTION
     Dates: start: 20020304
  2. NORVIR [Suspect]
     Indication: HIV INFECTION
     Route: 048
     Dates: start: 19971111, end: 19980311
  3. DIDANOSINE [Suspect]
     Indication: HIV INFECTION
     Route: 048
     Dates: start: 20010421
  4. DIDANOSINE [Suspect]
     Route: 048
     Dates: start: 20010401, end: 20010401
  5. SANILVUDINE [Suspect]
     Indication: HIV INFECTION
     Route: 048
     Dates: start: 20010801
  6. ABACAVIR SULFATE [Suspect]
     Indication: HIV INFECTION
     Route: 048
     Dates: start: 20010801
  7. NELFINAVIR [Suspect]
     Indication: HIV INFECTION
     Route: 048
     Dates: start: 20010401, end: 20020303
  8. EFAVIRENZ [Suspect]
     Indication: HIV INFECTION
     Route: 048
     Dates: start: 20010401, end: 20020303
  9. STAVUDINE [Suspect]
     Indication: HIV INFECTION
     Route: 048
     Dates: start: 20030401, end: 20040527
  10. STAVUDINE [Suspect]
     Route: 048
     Dates: start: 20010401, end: 20030331
  11. ATAZANAVIR [Suspect]
     Indication: HIV INFECTION
     Route: 048
     Dates: start: 20041008
  12. LOPERAMIDE HYDROCHLORIDE [Concomitant]
     Indication: DIARRHOEA
     Route: 048
     Dates: start: 20010401
  13. RURIOCTOCOG ALFA [Concomitant]
     Indication: HAEMORRHAGE
     Route: 042
     Dates: start: 20010401
  14. FACTOR VIII, RECOMBINANT [Concomitant]
     Indication: DRUG USE FOR UNKNOWN INDICATION
     Dates: start: 19991101
  15. AMPRENAVIR [Concomitant]
     Indication: DRUG USE FOR UNKNOWN INDICATION
     Dates: start: 19990510, end: 19990817
  16. TENOFOVIR [Concomitant]
     Indication: HIV INFECTION
     Dates: start: 20040528, end: 20041004
  17. PEGINTERFERON ALFA-2B [Concomitant]
     Indication: HEPATITIS C
     Dates: start: 20030317, end: 20030604
  18. RIBAVIRIN [Concomitant]
     Indication: HEPATITIS C
     Dates: start: 20030317, end: 20030604

REACTIONS (6)
  - CACHEXIA [None]
  - DIARRHOEA [None]
  - HYPERLACTACIDAEMIA [None]
  - OSTEONECROSIS [None]
  - PLATELET COUNT DECREASED [None]
  - RASH GENERALISED [None]
